FAERS Safety Report 24808320 (Version 1)
Quarter: 2025Q1

REPORT INFORMATION
  Report Type: Spontaneous
  Country: US (occurrence: US)
  Receive Date: 20250106
  Receipt Date: 20250106
  Transmission Date: 20250409
  Serious: Yes (Other)
  Sender: CELLTRION
  Company Number: US-CELLTRION INC.-2024US033416

PATIENT

DRUGS (1)
  1. ZYMFENTRA [Suspect]
     Active Substance: INFLIXIMAB-DYYB
     Indication: Colitis ulcerative
     Dosage: 120 MG  EVERY 2 WEEKS
     Route: 058
     Dates: start: 20241225

REACTIONS (2)
  - Haematochezia [Not Recovered/Not Resolved]
  - Treatment delayed [Unknown]

NARRATIVE: CASE EVENT DATE: 20241201
